FAERS Safety Report 9882696 (Version 1)
Quarter: 2014Q1

REPORT INFORMATION
  Report Type: Spontaneous
  Country: US (occurrence: US)
  Receive Date: 20140207
  Receipt Date: 20140207
  Transmission Date: 20141002
  Serious: Yes (Other)
  Sender: FDA-Public Use
  Company Number: PHHY2014US013413

PATIENT
  Age: 53 Year
  Sex: Male

DRUGS (3)
  1. BUPROPION [Suspect]
  2. CITALOPRAM [Suspect]
  3. TRAMADOL [Suspect]

REACTIONS (13)
  - Serotonin syndrome [Recovered/Resolved]
  - Pyrexia [Recovered/Resolved]
  - Tachycardia [Recovered/Resolved]
  - White blood cell count increased [Recovered/Resolved]
  - Bandaemia [Recovered/Resolved]
  - Blood creatine phosphokinase increased [Recovering/Resolving]
  - Anxiety [Recovered/Resolved]
  - Agitation [Recovered/Resolved]
  - Restlessness [Recovered/Resolved]
  - Hyperhidrosis [Recovered/Resolved]
  - Productive cough [Recovered/Resolved]
  - Resting tremor [Recovered/Resolved]
  - Hyperreflexia [Recovered/Resolved]
